FAERS Safety Report 9269552 (Version 2)
Quarter: 2014Q1

REPORT INFORMATION
  Report Type: Spontaneous
  Country: US (occurrence: US)
  Receive Date: 20130503
  Receipt Date: 20140319
  Transmission Date: 20141002
  Serious: Yes (Other)
  Sender: FDA-Public Use
  Company Number: US-TEVA-401556USA

PATIENT
  Age: 24 Year
  Sex: Female
  Weight: 58.11 kg

DRUGS (2)
  1. PLAN B ONE-STEP [Suspect]
     Indication: POST COITAL CONTRACEPTION
     Dosage: 1.5 MILLIGRAM DAILY;
     Route: 048
     Dates: start: 20130417, end: 20130417
  2. XANAX [Concomitant]
     Indication: ANXIETY
     Route: 048
     Dates: start: 2007

REACTIONS (5)
  - Premature labour [Recovered/Resolved]
  - Preterm premature rupture of membranes [Recovered/Resolved]
  - Cervical incompetence [Unknown]
  - Pregnancy after post coital contraception [Recovered/Resolved]
  - Drug ineffective [Recovered/Resolved]
